FAERS Safety Report 21258722 (Version 3)
Quarter: 2022Q3

REPORT INFORMATION
  Report Type: Other
  Country: PH (occurrence: None)
  Receive Date: 20220826
  Receipt Date: 20220920
  Transmission Date: 20221026
  Serious: Yes (Hospitalization, Other)
  Sender: FDA-Public Use
  Company Number: PH-ROCHE-3164139

PATIENT
  Age: 56 Year
  Sex: Female
  Weight: 72 kg

DRUGS (2)
  1. PERJETA [Suspect]
     Active Substance: PERTUZUMAB
     Indication: HER2 positive breast cancer
     Dosage: MORE DOSAGE INFORMATION 420 MG 1 VIAL, FORMULATION: VIAL
     Route: 042
  2. HERCEPTIN [Suspect]
     Active Substance: TRASTUZUMAB
     Indication: HER2 positive breast cancer
     Dosage: FORMULATION: INJECTION
     Route: 058

REACTIONS (7)
  - Myocardial infarction [Unknown]
  - Aneurysm [Unknown]
  - White blood cell count decreased [Unknown]
  - Hypoaesthesia [Unknown]
  - Oral pain [Unknown]
  - Diabetes mellitus [Unknown]
  - Hypoaesthesia [Unknown]
